FAERS Safety Report 5136053-5 (Version None)
Quarter: 2006Q4

REPORT INFORMATION
  Report Type: 
  Country: None (occurrence: None)
  Receive Date: 20061020
  Receipt Date: 20061006
  Transmission Date: 20070319
  Serious: Yes (Hospitalization)
  Sender: FDA-Public Use
  Company Number: 230638K06CAN

PATIENT
  Sex: Female

DRUGS (5)
  1. REBIF [Suspect]
     Indication: RELAPSING-REMITTING MULTIPLE SCLEROSIS
     Dosage: SUBCUTANEOUS
     Route: 058
     Dates: start: 20040820
  2. AMITRIPTYLINE HCL [Concomitant]
  3. TOPAMAX [Concomitant]
  4. NAPROXEN SODIUM [Concomitant]
  5. NAPROXEN [Concomitant]

REACTIONS (3)
  - ACNE [None]
  - INFLUENZA LIKE ILLNESS [None]
  - MENINGITIS VIRAL [None]
